FAERS Safety Report 5542564-0 (Version None)
Quarter: 2007Q4

REPORT INFORMATION
  Report Type: 
  Country: None (occurrence: None)
  Receive Date: 20071123
  Receipt Date: 20070726
  Transmission Date: 20080405
  Serious: Yes (Other)
  Sender: FDA-Public Use
  Company Number: US-JNJFOC-20070706576

PATIENT
  Age: 27 Year
  Sex: Female
  Weight: 96.1626 kg

DRUGS (17)
  1. LEVAQUIN [Suspect]
     Indication: URINARY TRACT INFECTION
     Dosage: 500 MG, 1 IN 1 DAY, ORAL
     Route: 048
     Dates: start: 20060220, end: 20060226
  2. BETAFERON [Suspect]
     Indication: RELAPSING-REMITTING MULTIPLE SCLEROSIS
     Dosage: 250 UG, SUBCUTANEOUS, 500 UG, SUBCUTANEOUS
     Route: 058
     Dates: start: 20050217
  3. BETAFERON [Suspect]
     Indication: RELAPSING-REMITTING MULTIPLE SCLEROSIS
     Dosage: 250 UG, SUBCUTANEOUS, 500 UG, SUBCUTANEOUS
     Route: 058
     Dates: start: 20050217
  4. COPAXONE [Suspect]
     Indication: RELAPSING-REMITTING MULTIPLE SCLEROSIS
     Dosage: 20 MG, IN 1 DAY, SUBCUTANEOUS
     Route: 058
     Dates: start: 20050217
  5. WELLBUTRIN [Concomitant]
  6. BENADRYL ACHE (DIPHENHYDRAMINE HYDROCHLORIDE) [Concomitant]
  7. ZYRTEC [Concomitant]
  8. LIDODERM [Concomitant]
  9. EMLA CREAM (EMLA) CREAM [Concomitant]
  10. MOTRIN [Concomitant]
  11. AMANTADINE HCL [Concomitant]
  12. BACLOFEN [Concomitant]
  13. ACIPHEX [Concomitant]
  14. MOBIC [Concomitant]
  15. SENOKOT-S (SENOKOT-S) [Concomitant]
  16. DESYREL [Concomitant]
  17. ADVIL [Concomitant]

REACTIONS (1)
  - LYMPHOCYTE COUNT DECREASED [None]
